FAERS Safety Report 23908393 (Version 1)
Quarter: 2024Q2

REPORT INFORMATION
  Report Type: Spontaneous
  Country: JP (occurrence: JP)
  Receive Date: 20240528
  Receipt Date: 20240528
  Transmission Date: 20240716
  Serious: Yes (Other)
  Sender: FDA-Public Use
  Company Number: JP-OTSUKA-2024_014706

PATIENT
  Age: 38 Year
  Sex: Female
  Weight: 59.7 kg

DRUGS (5)
  1. BUSULFAN [Suspect]
     Active Substance: BUSULFAN
     Indication: Allogenic bone marrow transplantation therapy
     Dosage: 30 MG/M2 (DAY -7 TO DAY -5)
     Route: 065
  2. CYCLOPHOSPHAMIDE [Suspect]
     Active Substance: CYCLOPHOSPHAMIDE
     Indication: Allogenic bone marrow transplantation therapy
     Dosage: 0.8 MG/M2 (DAYS -4, -3)
     Route: 065
  3. TACROLIMUS [Suspect]
     Active Substance: TACROLIMUS
     Indication: Prophylaxis against graft versus host disease
     Dosage: 1.5 MG/DAY (STARTED ON DAY -1)
     Route: 065
  4. METHOTREXATE [Suspect]
     Active Substance: METHOTREXATE
     Indication: Prophylaxis against graft versus host disease
     Dosage: 10 MG/M2 (DAY 1 TO DAY 11)
     Route: 065
  5. URSODIOL [Concomitant]
     Active Substance: URSODIOL
     Indication: Prophylaxis
     Dosage: 600 MG/DAY
     Route: 065

REACTIONS (2)
  - Renal impairment [Unknown]
  - Venoocclusive liver disease [Recovered/Resolved]
